FAERS Safety Report 5643397-7 (Version None)
Quarter: 2008Q1

REPORT INFORMATION
  Report Type: 
  Country: None (occurrence: None)
  Receive Date: 20080228
  Receipt Date: 20080215
  Transmission Date: 20080703
  Serious: Yes (Other)
  Sender: FDA-Public Use
  Company Number: DE-GENENTECH-256188

PATIENT
  Sex: Male

DRUGS (1)
  1. XOLAIR [Suspect]
     Indication: DRUG USE FOR UNKNOWN INDICATION
     Dosage: 150 MG, 1/MONTH
     Route: 058
     Dates: start: 20070901, end: 20071201

REACTIONS (2)
  - BRONCHITIS [None]
  - TINNITUS [None]
